FAERS Safety Report 8366564-0 (Version None)
Quarter: 2012Q2

REPORT INFORMATION
  Report Type: 
  Country: None (occurrence: None)
  Receive Date: 20120517
  Receipt Date: 20120514
  Transmission Date: 20120825
  Serious: No
  Sender: FDA-Public Use
  Company Number: US-BAYER-2012-047396

PATIENT
  Age: 39 Year
  Sex: Male
  Weight: 82 kg

DRUGS (3)
  1. IBUPROFEN (ADVIL) [Concomitant]
     Dosage: 200 MG
  2. BETASERON [Suspect]
     Dosage: 0.25 MG, UNK
     Route: 058
  3. NAPROXEN (ALEVE) [Concomitant]
     Dosage: 220 MG

REACTIONS (4)
  - SKIN BURNING SENSATION [None]
  - ERYTHEMA [None]
  - BURNING SENSATION [None]
  - DRY SKIN [None]
